FAERS Safety Report 4264615-6 (Version None)
Quarter: 2004Q1

REPORT INFORMATION
  Report Type: 
  Country: None (occurrence: None)
  Receive Date: 20040106
  Receipt Date: 20031229
  Transmission Date: 20041129
  Serious: Yes (Other)
  Sender: FDA-Public Use
  Company Number: FR-ROCHE-354889

PATIENT
  Age: 23 Year
  Sex: Male

DRUGS (1)
  1. VALIUM [Suspect]
     Indication: ALCOHOL REHABILITATION
     Route: 065

REACTIONS (2)
  - HYPOGLYCAEMIA [None]
  - SELF-MEDICATION [None]
